FAERS Safety Report 7161302-1 (Version None)
Quarter: 2010Q4

REPORT INFORMATION
  Report Type: 
  Country: None (occurrence: None)
  Receive Date: 20101210
  Receipt Date: 20101210
  Transmission Date: 20110411
  Serious: Yes (Life-Threatening, Hospitalization)
  Sender: FDA-Public Use
  Company Number: None

PATIENT
  Age: 49 Year
  Sex: Male
  Weight: 81 kg

DRUGS (1)
  1. IBUPROFEN [Suspect]
     Dosage: 200 MG UNKNOWN PO
     Route: 048
     Dates: start: 20100321, end: 20100322

REACTIONS (3)
  - ANAPHYLACTIC REACTION [None]
  - RESPIRATORY DISTRESS [None]
  - SWELLING [None]
